FAERS Safety Report 7807563-4 (Version None)
Quarter: 2011Q4

REPORT INFORMATION
  Report Type: 
  Country: None (occurrence: None)
  Receive Date: 20111011
  Receipt Date: 20111003
  Transmission Date: 20120403
  Serious: Yes (Hospitalization)
  Sender: FDA-Public Use
  Company Number: IT-GLAXOSMITHKLINE-B0754356A

PATIENT
  Sex: Male

DRUGS (5)
  1. LEUPROLIDE ACETATE [Concomitant]
     Route: 030
  2. LEVOTHYROXINE SODIUM [Concomitant]
     Route: 048
  3. VALACYCLOVIR HYDROCHLORIDE [Suspect]
     Indication: HERPES SIMPLEX OPHTHALMIC
     Dosage: 2G PER DAY
     Route: 048
     Dates: start: 20110321, end: 20110421
  4. TOPAMAX [Concomitant]
     Route: 048
  5. PLAVIX [Concomitant]
     Route: 048

REACTIONS (2)
  - SYNCOPE [None]
  - DIARRHOEA [None]
